FAERS Safety Report 13460104 (Version 1)
Quarter: 2017Q2

REPORT INFORMATION
  Report Type: Spontaneous
  Country: SE (occurrence: SE)
  Receive Date: 20170420
  Receipt Date: 20170420
  Transmission Date: 20170830
  Serious: Yes (Other)
  Sender: FDA-Public Use
  Company Number: SE-AUROBINDO-AUR-APL-2017-31302

PATIENT
  Age: 41 Year
  Sex: Female

DRUGS (1)
  1. ORALIN FILM-COATED TABLETS 50MG [Suspect]
     Active Substance: SERTRALINE HYDROCHLORIDE
     Indication: PRODUCT USED FOR UNKNOWN INDICATION
     Dosage: 50 MG, UNK
     Route: 065
     Dates: start: 2016, end: 2016

REACTIONS (6)
  - Product substitution issue [Unknown]
  - Sedation [Unknown]
  - Dizziness [Unknown]
  - Nausea [Unknown]
  - Product quality issue [Unknown]
  - Fatigue [Unknown]

NARRATIVE: CASE EVENT DATE: 20161103
